FAERS Safety Report 9523983 (Version 1)
Quarter: 2013Q3

REPORT INFORMATION
  Report Type: Spontaneous
  Country: US (occurrence: US)
  Receive Date: 20130916
  Receipt Date: 20130916
  Transmission Date: 20140515
  Serious: Yes (Other)
  Sender: FDA-Public Use
  Company Number: US-TEVA-432161USA

PATIENT
  Age: 21 Year
  Sex: Female

DRUGS (2)
  1. PARAGARD 380A [Suspect]
     Indication: CONTRACEPTION
     Route: 015
     Dates: start: 20130220, end: 20130225
  2. VITAMINS [Concomitant]

REACTIONS (3)
  - Device dislocation [Recovered/Resolved]
  - Discomfort [Unknown]
  - Pelvic pain [Unknown]
